FAERS Safety Report 9408916 (Version 3)
Quarter: 2013Q3

REPORT INFORMATION
  Report Type: Spontaneous
  Country: AU (occurrence: AU)
  Receive Date: 20130719
  Receipt Date: 20130816
  Transmission Date: 20140515
  Serious: Yes (Other)
  Sender: FDA-Public Use
  Company Number: AU-SP-2013-07748

PATIENT
  Age: 58 Year
  Sex: Female

DRUGS (5)
  1. MERIEUX INACTIVATED RABIES VACCINE 2.5 IU [Suspect]
     Indication: IMMUNISATION
     Route: 030
     Dates: start: 20130615, end: 20130615
  2. IMOGAM RABIES PASTEURIZED [Suspect]
     Indication: IMMUNISATION
     Route: 065
     Dates: start: 20130615, end: 20130615
  3. MERIEUX INACTIVATED RABIES VACCINE 2.5 IU [Suspect]
     Indication: IMMUNISATION
     Route: 030
     Dates: start: 20130618, end: 20130618
  4. MERIEUX INACTIVATED RABIES VACCINE 2.5 IU [Suspect]
     Indication: IMMUNISATION
     Route: 030
     Dates: start: 20130622, end: 20130622
  5. MERIEUX INACTIVATED RABIES VACCINE 2.5 IU [Suspect]
     Indication: IMMUNISATION
     Route: 030
     Dates: start: 20130629, end: 20130629

REACTIONS (2)
  - Tenderness [Recovered/Resolved]
  - Lymphadenopathy [Recovered/Resolved]
